FAERS Safety Report 18059356 (Version 1)
Quarter: 2020Q3

REPORT INFORMATION
  Report Type: Spontaneous
  Country: US (occurrence: US)
  Receive Date: 20200723
  Receipt Date: 20200723
  Transmission Date: 20201103
  Serious: Yes (Hospitalization, Disabling)
  Sender: FDA-Public Use
  Company Number: None

PATIENT
  Age: 26 Year
  Sex: Female
  Weight: 105.75 kg

DRUGS (1)
  1. METOCLOPRAMIDE. [Suspect]
     Active Substance: METOCLOPRAMIDE
     Indication: HYPEREMESIS GRAVIDARUM
     Route: 048
     Dates: start: 20191103, end: 20200513

REACTIONS (4)
  - Loss of personal independence in daily activities [None]
  - Pregnancy [None]
  - Exposure during pregnancy [None]
  - Tardive dyskinesia [None]

NARRATIVE: CASE EVENT DATE: 20200513
